FAERS Safety Report 5188378-5 (Version None)
Quarter: 2006Q4

REPORT INFORMATION
  Report Type: 
  Country: None (occurrence: None)
  Receive Date: 20061221
  Receipt Date: 20061127
  Transmission Date: 20070319
  Serious: Yes (Other)
  Sender: FDA-Public Use
  Company Number: ES-SHR-ES-2006-036638

PATIENT
  Age: 32 Year
  Sex: Female

DRUGS (1)
  1. MIRENA [Suspect]
     Indication: CONTRACEPTION
     Dosage: 20 A?G/DAY, CONT
     Route: 015

REACTIONS (3)
  - BASOPHIL COUNT INCREASED [None]
  - BLOOD IMMUNOGLOBULIN E INCREASED [None]
  - DERMATITIS ALLERGIC [None]
